FAERS Safety Report 22015014 (Version 1)
Quarter: 2023Q1

REPORT INFORMATION
  Report Type: Other
  Country: US (occurrence: None)
  Receive Date: 20230221
  Receipt Date: 20230221
  Transmission Date: 20230417
  Serious: No
  Sender: FDA-Public Use
  Company Number: US-ROCHE-3288396

PATIENT
  Age: 62 Year
  Sex: Male

DRUGS (1)
  1. OCRELIZUMAB [Suspect]
     Active Substance: OCRELIZUMAB
     Indication: Multiple sclerosis
     Route: 065

REACTIONS (6)
  - COVID-19 [Unknown]
  - Hypoaesthesia [Unknown]
  - Asthenia [Unknown]
  - Somnolence [Unknown]
  - Hypercapnia [Unknown]
  - Bradypnoea [Unknown]
